FAERS Safety Report 5162576-9 (Version None)
Quarter: 2006Q4

REPORT INFORMATION
  Report Type: 
  Country: None (occurrence: None)
  Receive Date: 20061121
  Receipt Date: 20061117
  Transmission Date: 20070319
  Serious: No
  Sender: FDA-Public Use
  Company Number: 06H-163-0311231-00

PATIENT
  Sex: Female

DRUGS (3)
  1. LORAZEPAM [Suspect]
     Indication: PREMEDICATION
     Dosage: 1 MG, INTRAVENOUS
     Route: 042
     Dates: start: 20061115, end: 20061115
  2. LORAZEPAM [Suspect]
     Indication: SEDATIVE THERAPY
     Dosage: 1 MG, INTRAVENOUS
     Route: 042
     Dates: start: 20061115, end: 20061115
  3. LIDOCAINE [Concomitant]

REACTIONS (1)
  - TARDIVE DYSKINESIA [None]
